FAERS Safety Report 8068149-2 (Version None)
Quarter: 2012Q1

REPORT INFORMATION
  Report Type: 
  Country: None (occurrence: None)
  Receive Date: 20120124
  Receipt Date: 20110928
  Transmission Date: 20120608
  Serious: No
  Sender: FDA-Public Use
  Company Number: US-AMGEN-USASP2011050179

PATIENT
  Sex: Female

DRUGS (4)
  1. PROLIA [Suspect]
     Indication: OSTEOPOROSIS POSTMENOPAUSAL
     Dosage: 60 MG, Q6MO
     Dates: start: 20110915
  2. TENORMIN [Concomitant]
  3. AMLODIPINE [Concomitant]
  4. BENICAR [Concomitant]

REACTIONS (6)
  - CHEST DISCOMFORT [None]
  - POLLAKIURIA [None]
  - HEADACHE [None]
  - BACK PAIN [None]
  - RASH PAPULAR [None]
  - PAIN IN EXTREMITY [None]
